FAERS Safety Report 10017475 (Version 4)
Quarter: 2016Q1

REPORT INFORMATION
  Report Type: Report from Study
  Country: CA (occurrence: CA)
  Receive Date: 20140318
  Receipt Date: 20160308
  Transmission Date: 20160525
  Serious: Yes (Death, Hospitalization)
  Sender: FDA-Public Use
  Company Number: CA-ROCHE-1355763

PATIENT
  Age: 65 Year
  Sex: Male

DRUGS (27)
  1. RITUXAN [Suspect]
     Active Substance: RITUXIMAB
     Indication: RHEUMATOID ARTHRITIS
     Dosage: LAST DOSE: 26/MAR/2014 AND 9/APR/2014
     Route: 042
     Dates: start: 20120906, end: 20151110
  2. ACTEMRA [Suspect]
     Active Substance: TOCILIZUMAB
     Indication: PRODUCT USED FOR UNKNOWN INDICATION
     Route: 042
  3. ASA [Concomitant]
     Active Substance: ASPIRIN
  4. LIPITOR [Concomitant]
     Active Substance: ATORVASTATIN CALCIUM
  5. VENTOLIN [Concomitant]
     Active Substance: ALBUTEROL SULFATE
  6. SPIRIVA [Concomitant]
     Active Substance: TIOTROPIUM BROMIDE MONOHYDRATE
  7. HYDROMORPH CONTIN [Concomitant]
     Active Substance: HYDROMORPHONE
  8. DOCUSATE [Concomitant]
     Active Substance: DOCUSATE
  9. COUMADIN [Concomitant]
     Active Substance: WARFARIN SODIUM
  10. NITRO-DUR [Concomitant]
     Active Substance: NITROGLYCERIN
  11. FUROSEMIDE. [Concomitant]
     Active Substance: FUROSEMIDE
  12. SEREVENT DISKUS [Concomitant]
     Active Substance: SALMETEROL XINAFOATE
  13. COVERSYL [Concomitant]
     Active Substance: PERINDOPRIL
  14. ACETAMINOPHEN. [Concomitant]
     Active Substance: ACETAMINOPHEN
     Indication: PREMEDICATION
     Route: 048
     Dates: start: 20120906, end: 20151110
  15. METHYLPREDNISOLONE. [Concomitant]
     Active Substance: METHYLPREDNISOLONE
     Indication: PREMEDICATION
     Route: 042
     Dates: start: 20120906, end: 20151110
  16. METFORMIN [Concomitant]
     Active Substance: METFORMIN HYDROCHLORIDE
     Route: 065
  17. NOVOLIN [Concomitant]
     Active Substance: INSULIN HUMAN
  18. VITAMIN B12 [Concomitant]
     Active Substance: CYANOCOBALAMIN
  19. LANSOPRAZOLE. [Concomitant]
     Active Substance: LANSOPRAZOLE
  20. TYLENOL [Concomitant]
     Active Substance: ACETAMINOPHEN
  21. DIPHENHYDRAMINE HCL [Concomitant]
     Active Substance: DIPHENHYDRAMINE HYDROCHLORIDE
     Indication: PREMEDICATION
     Route: 048
     Dates: start: 20120906, end: 20151110
  22. PREDNISONE. [Concomitant]
     Active Substance: PREDNISONE
  23. JANUVIA [Concomitant]
     Active Substance: SITAGLIPTIN PHOSPHATE
  24. SPIRONOLACTONE. [Concomitant]
     Active Substance: SPIRONOLACTONE
  25. XATRAL [Concomitant]
     Active Substance: ALFUZOSIN
  26. OXAZEPAM. [Concomitant]
     Active Substance: OXAZEPAM
  27. LYRICA [Concomitant]
     Active Substance: PREGABALIN

REACTIONS (4)
  - Arthralgia [Not Recovered/Not Resolved]
  - Death [Fatal]
  - Rheumatoid arthritis [Not Recovered/Not Resolved]
  - Haemorrhage [Unknown]

NARRATIVE: CASE EVENT DATE: 201407
